FAERS Safety Report 9674842 (Version 1)
Quarter: 2013Q4

REPORT INFORMATION
  Report Type: Spontaneous
  Country: US (occurrence: None)
  Receive Date: 20131106
  Receipt Date: 20131106
  Transmission Date: 20140711
  Serious: Yes (Death)
  Sender: FDA-Public Use
  Company Number: None

PATIENT
  Age: 65 Year
  Sex: Female
  Weight: 51 kg

DRUGS (11)
  1. TIGECYCLINE [Suspect]
     Indication: SEPSIS
     Route: 042
     Dates: start: 20131102, end: 20131104
  2. TIGECYCLINE [Suspect]
     Indication: ABDOMINAL INFECTION
     Route: 042
     Dates: start: 20131102, end: 20131104
  3. PANTOPRAZOLE [Concomitant]
  4. RIFAXIMIN [Concomitant]
  5. LEVOTHYROXINE [Concomitant]
  6. ONDANSERON [Concomitant]
  7. VANCOMCIN [Concomitant]
  8. METRONIDAZOLE [Concomitant]
  9. METHYLPREDNISONE [Concomitant]
  10. MICAFUNGIN [Concomitant]
  11. CEFEPIME [Concomitant]

REACTIONS (1)
  - Death [None]
